FAERS Safety Report 24920452 (Version 1)
Quarter: 2025Q1

REPORT INFORMATION
  Report Type: Report from Study
  Country: US (occurrence: US)
  Receive Date: 20250204
  Receipt Date: 20250204
  Transmission Date: 20250408
  Serious: No
  Sender: EXELIXIS
  Company Number: US-EXELIXIS-CABO-24073962

PATIENT
  Sex: Female

DRUGS (1)
  1. CABOMETYX [Suspect]
     Active Substance: CABOZANTINIB S-MALATE
     Indication: Renal cancer
     Dosage: 40 MG, QD
     Route: 048
     Dates: start: 20240210

REACTIONS (7)
  - Blood pressure increased [Unknown]
  - Headache [Unknown]
  - Pain in extremity [Unknown]
  - Pain in jaw [Unknown]
  - Tinnitus [Recovered/Resolved]
  - Gastrooesophageal reflux disease [Unknown]
  - Glossodynia [Unknown]
